FAERS Safety Report 4476562-5 (Version None)
Quarter: 2004Q4

REPORT INFORMATION
  Report Type: 
  Country: None (occurrence: None)
  Receive Date: 20041013
  Receipt Date: 20040930
  Transmission Date: 20050328
  Serious: Yes (Hospitalization)
  Sender: FDA-Public Use
  Company Number: WAES 0409USA00588

PATIENT
  Age: 61 Year
  Sex: Female

DRUGS (9)
  1. HYZAAR [Suspect]
     Indication: HYPERTENSION
     Dates: end: 20040106
  2. PLACEBO [Suspect]
  3. ARIMIDEX [Concomitant]
  4. BEXTRA [Concomitant]
  5. FOSAMAX [Concomitant]
  6. PAXIL [Concomitant]
  7. SYNTHROID [Concomitant]
  8. CLONIDINE HCL [Concomitant]
  9. IBUPROFEN [Concomitant]

REACTIONS (2)
  - CELLULITIS [None]
  - LYMPHOEDEMA [None]
